FAERS Safety Report 6542138-9 (Version None)
Quarter: 2010Q1

REPORT INFORMATION
  Report Type: 
  Country: None (occurrence: None)
  Receive Date: 20100119
  Receipt Date: 20100108
  Transmission Date: 20100710
  Serious: Yes (Other)
  Sender: FDA-Public Use
  Company Number: US-JNJFOC-20100103895

PATIENT
  Age: 29 Year
  Sex: Female

DRUGS (4)
  1. NUCYNTA [Suspect]
     Indication: PAIN
     Route: 048
  2. INHALER NOS [Interacting]
     Indication: ASTHMA
     Route: 055
  3. LYRICA [Concomitant]
     Route: 065
  4. CYMBALTA [Concomitant]
     Route: 065

REACTIONS (3)
  - ASTHMA [None]
  - CHEST DISCOMFORT [None]
  - DRUG INTERACTION [None]
